FAERS Safety Report 10726340 (Version 1)
Quarter: 2015Q1

REPORT INFORMATION
  Report Type: Spontaneous
  Country: US (occurrence: None)
  Receive Date: 20150120
  Receipt Date: 20150120
  Transmission Date: 20150721
  Serious: No
  Sender: FDA-Public Use
  Company Number: None

PATIENT
  Age: 60 Year
  Sex: Female

DRUGS (11)
  1. LORAZAPAM [Concomitant]
     Active Substance: LORAZEPAM
  2. VITAMIN B12 [Concomitant]
     Active Substance: CYANOCOBALAMIN
  3. VITAMIN D-3 [Concomitant]
  4. GLEEVEC [Suspect]
     Active Substance: IMATINIB MESYLATE
     Indication: LEUKAEMIA
     Route: 048
     Dates: start: 20141216, end: 20150112
  5. CALTRATE [Concomitant]
     Active Substance: CALCIUM CARBONATE
  6. FERROUS SULFATE [Concomitant]
     Active Substance: FERROUS SULFATE\FERROUS SULFATE, DRIED
  7. HYDROCODONE/APAP [Concomitant]
     Active Substance: ACETAMINOPHEN\HYDROCODONE
  8. CARDIODAILY CAP [Concomitant]
  9. FUMARATE [Concomitant]
  10. BISOPROLOL [Concomitant]
     Active Substance: BISOPROLOL
  11. ESTRADIOL. [Concomitant]
     Active Substance: ESTRADIOL

REACTIONS (6)
  - Tachycardia [None]
  - Diarrhoea [None]
  - Palpitations [None]
  - Arthralgia [None]
  - Rash [None]
  - Fatigue [None]

NARRATIVE: CASE EVENT DATE: 20150112
